FAERS Safety Report 5708537-X (Version None)
Quarter: 2008Q2

REPORT INFORMATION
  Report Type: 
  Country: None (occurrence: None)
  Receive Date: 20080417
  Receipt Date: 20080407
  Transmission Date: 20081010
  Serious: Yes (Other)
  Sender: FDA-Public Use
  Company Number: MY-PFIZER INC-2008031152

PATIENT
  Age: 33 Year
  Sex: Male

DRUGS (1)
  1. SULPERAZON [Suspect]
     Indication: ACINETOBACTER INFECTION
     Dosage: DAILY DOSE:6GRAM-FREQ:DAILY
     Route: 048

REACTIONS (1)
  - BLEEDING TIME PROLONGED [None]
